FAERS Safety Report 5165653-1 (Version None)
Quarter: 2006Q4

REPORT INFORMATION
  Report Type: 
  Country: None (occurrence: None)
  Receive Date: 20061128
  Receipt Date: 20061101
  Transmission Date: 20070319
  Serious: Yes (Death)
  Sender: FDA-Public Use
  Company Number: 30525

PATIENT
  Age: 53 Year
  Sex: Male

DRUGS (5)
  1. NUELIN DEPOT           (THEOPHYLLINE) [Suspect]
  2. PIPERACILLIN AND TAZOBACTAM [Concomitant]
  3. AFIPRAN [Concomitant]
  4. INSULIN [Concomitant]
  5. CYTOSTATICA [Concomitant]

REACTIONS (28)
  - ARTERIOSCLEROSIS CORONARY ARTERY [None]
  - BLOOD AMYLASE DECREASED [None]
  - BLOOD BILIRUBIN INCREASED [None]
  - BLOOD CALCIUM INCREASED [None]
  - BLOOD GLUCOSE INCREASED [None]
  - BLOOD SODIUM DECREASED [None]
  - BRONCHIAL OBSTRUCTION [None]
  - C-REACTIVE PROTEIN INCREASED [None]
  - CONVULSION [None]
  - CORONARY ARTERY STENOSIS [None]
  - DRUG TOXICITY [None]
  - DYSPNOEA [None]
  - HAEMOGLOBIN DECREASED [None]
  - LUNG DISORDER [None]
  - LUNG NEOPLASM [None]
  - METASTASES TO LIVER [None]
  - METASTASES TO LYMPH NODES [None]
  - METASTASES TO PLEURA [None]
  - METASTASES TO SPLEEN [None]
  - METASTASIS [None]
  - MYOCARDIAL INFARCTION [None]
  - NAUSEA [None]
  - PERICARDIAL HAEMORRHAGE [None]
  - PERICARDITIS [None]
  - PULMONARY OEDEMA [None]
  - PURULENCE [None]
  - RENAL FAILURE [None]
  - WHITE BLOOD CELL COUNT INCREASED [None]
